FAERS Safety Report 25918373 (Version 1)
Quarter: 2025Q4

REPORT INFORMATION
  Report Type: Spontaneous
  Country: US (occurrence: None)
  Receive Date: 20251010
  Receipt Date: 20251010
  Transmission Date: 20260118
  Serious: Yes (Other)
  Sender: FDA-CTU
  Company Number: None

PATIENT
  Age: 43 Year
  Sex: Male

DRUGS (1)
  1. ASCORBIC ACID\BIOTIN\FINASTERIDE\MINOXIDIL\PANTOTHENIC ACID\PYRIDOXINE [Suspect]
     Active Substance: ASCORBIC ACID\BIOTIN\FINASTERIDE\MINOXIDIL\PANTOTHENIC ACID\PYRIDOXINE
     Indication: Alopecia
     Dosage: FREQUENCY : DAILY;?
     Route: 048

REACTIONS (6)
  - Gastrointestinal disorder [None]
  - Chest discomfort [None]
  - Wheezing [None]
  - Lymphadenopathy [None]
  - Drug hypersensitivity [None]
  - Therapy cessation [None]

NARRATIVE: CASE EVENT DATE: 20251009
